FAERS Safety Report 23718208 (Version 1)
Quarter: 2024Q2

REPORT INFORMATION
  Report Type: Spontaneous
  Country: US (occurrence: None)
  Receive Date: 20240406
  Receipt Date: 20240406
  Transmission Date: 20240716
  Serious: Yes (Other)
  Sender: FDA-Public Use
  Company Number: None

PATIENT
  Age: 36 Year
  Sex: Female
  Weight: 74.25 kg

DRUGS (16)
  1. ORILISSA [Suspect]
     Active Substance: ELAGOLIX SODIUM
     Indication: Menopause
     Dosage: 1 TABLET DAILY ORAL
     Route: 048
     Dates: start: 20240325, end: 20240404
  2. ADDERALL XR [Concomitant]
     Active Substance: AMPHETAMINE ASPARTATE\AMPHETAMINE SULFATE\DEXTROAMPHETAMINE SACCHARATE\DEXTROAMPHETAMINE SULFATE
  3. EFFEXOR [Concomitant]
     Active Substance: VENLAFAXINE HYDROCHLORIDE
  4. TRAZODONE [Concomitant]
     Active Substance: TRAZODONE HYDROCHLORIDE
  5. PROTONIX [Concomitant]
     Active Substance: PANTOPRAZOLE SODIUM
  6. PEPCID [Concomitant]
     Active Substance: FAMOTIDINE
  7. omjmesartan [Concomitant]
  8. VERAPAMIL [Concomitant]
     Active Substance: VERAPAMIL HYDROCHLORIDE
  9. NURTEC ODT [Concomitant]
     Active Substance: RIMEGEPANT SULFATE
  10. AJOVY [Concomitant]
     Active Substance: FREMANEZUMAB-VFRM
  11. GABAPENTIN [Concomitant]
     Active Substance: GABAPENTIN
  12. TIZANIDINE [Concomitant]
     Active Substance: TIZANIDINE
  13. LORAZEPAM [Concomitant]
     Active Substance: LORAZEPAM
  14. Hemaplex iron supplement [Concomitant]
  15. claritin low dose aspirin [Concomitant]
  16. excedrine [Concomitant]

REACTIONS (2)
  - Suicidal ideation [None]
  - Depression [None]

NARRATIVE: CASE EVENT DATE: 20240325
